FAERS Safety Report 24669772 (Version 1)
Quarter: 2024Q4

REPORT INFORMATION
  Report Type: Spontaneous
  Country: EG (occurrence: EG)
  Receive Date: 20241127
  Receipt Date: 20241127
  Transmission Date: 20250114
  Serious: Yes (Other)
  Sender: HIKMA
  Company Number: EG-HIKMA PHARMACEUTICALS USA INC.-EG-H14001-24-10961

PATIENT

DRUGS (4)
  1. GEMZAR [Suspect]
     Active Substance: GEMCITABINE HYDROCHLORIDE
     Indication: Breast cancer
     Dosage: 2000 MG/DAY 1,8/EVERY 21 DAYS
     Route: 041
     Dates: start: 20240729
  2. GEMZAR [Suspect]
     Active Substance: GEMCITABINE HYDROCHLORIDE
     Dosage: 2000 MG/DAY 1,8/EVERY 21 DAYS
     Route: 041
     Dates: start: 20240805
  3. CISPLATIN [Suspect]
     Active Substance: CISPLATIN
     Indication: Breast cancer
     Dosage: 80 MG/DAY 1,8/EVERY 21 DAYS
     Route: 041
     Dates: start: 20240729
  4. CISPLATIN [Suspect]
     Active Substance: CISPLATIN
     Dosage: 80 MG/DAY 1,8/EVERY 21 DAYS
     Route: 041
     Dates: start: 20240805

REACTIONS (4)
  - Abdominal pain upper [Not Recovered/Not Resolved]
  - Dysgeusia [Not Recovered/Not Resolved]
  - Neuropathy peripheral [Not Recovered/Not Resolved]
  - Vomiting [Not Recovered/Not Resolved]

NARRATIVE: CASE EVENT DATE: 20240730
